FAERS Safety Report 10418239 (Version 1)
Quarter: 2014Q2

REPORT INFORMATION
  Report Type: Spontaneous
  Country: US (occurrence: None)
  Receive Date: 20140613
  Receipt Date: 20140613
  Transmission Date: 20141212
  Serious: No
  Sender: FDA-Public Use
  Company Number: 1356903

PATIENT
  Age: 37 Year
  Sex: Male

DRUGS (1)
  1. VEMURAFENIB [Suspect]
     Indication: MALIGNANT MELANOMA
     Dosage: 1920 MG (960 MG, 2 IN 1 D) , UNKNOWN

REACTIONS (4)
  - Recall phenomenon [None]
  - Wound dehiscence [None]
  - Dermatitis [None]
  - Keratosis pilaris [None]
